FAERS Safety Report 14131865 (Version 1)
Quarter: 2017Q4

REPORT INFORMATION
  Report Type: Spontaneous
  Country: CH (occurrence: CH)
  Receive Date: 20171026
  Receipt Date: 20171026
  Transmission Date: 20180321
  Serious: Yes (Other)
  Sender: FDA-Public Use
  Company Number: CH-MYLANLABS-2017M1066774

PATIENT
  Age: 72 Year
  Sex: Male

DRUGS (4)
  1. AMOXICILLIN. [Suspect]
     Active Substance: AMOXICILLIN
     Indication: GASTRIC ULCER HELICOBACTER
     Dosage: 2 G, UNK
  2. OMEPRAZOLE. [Suspect]
     Active Substance: OMEPRAZOLE
     Indication: GASTRIC ULCER HELICOBACTER
     Dosage: 40 MG, QD
  3. CLARITHROMYCIN. [Suspect]
     Active Substance: CLARITHROMYCIN
     Indication: GASTRIC ULCER HELICOBACTER
     Dosage: 1 G, UNK
  4. ATORVASTATIN [Interacting]
     Active Substance: ATORVASTATIN
     Indication: HYPERCHOLESTEROLAEMIA

REACTIONS (4)
  - Drug interaction [Unknown]
  - Muscle spasms [Unknown]
  - Myalgia [Unknown]
  - Muscular weakness [Unknown]
